FAERS Safety Report 9990624 (Version 1)
Quarter: 2014Q1

REPORT INFORMATION
  Report Type: Spontaneous
  Country: US (occurrence: US)
  Receive Date: 20140310
  Receipt Date: 20140310
  Transmission Date: 20141002
  Serious: Yes (Other)
  Sender: FDA-Public Use
  Company Number: US-ABBVIE-13P-163-1130695-00

PATIENT
  Sex: 0

DRUGS (5)
  1. HUMIRA [Suspect]
     Indication: PSORIASIS
  2. STELARA [Suspect]
     Indication: PSORIASIS
     Route: 058
  3. CLOBETASOL [Concomitant]
     Indication: PSORIASIS
  4. DOVONEX [Concomitant]
     Indication: PSORIASIS
  5. DOVONEX [Concomitant]
     Indication: PSORIASIS

REACTIONS (1)
  - Rash pustular [Unknown]
